FAERS Safety Report 19801057 (Version 2)
Quarter: 2021Q3

REPORT INFORMATION
  Report Type: Report from Study
  Country: EG (occurrence: EG)
  Receive Date: 20210907
  Receipt Date: 20210914
  Transmission Date: 20211014
  Serious: Yes (Other)
  Sender: FDA-Public Use
  Company Number: EG-REGENERON PHARMACEUTICALS, INC.-2021-83767

PATIENT

DRUGS (4)
  1. EYLEA [Suspect]
     Active Substance: AFLIBERCEPT
     Dosage: RIGHT EYE
     Route: 031
  2. EYLEA [Suspect]
     Active Substance: AFLIBERCEPT
     Dosage: 1 DF, ONCE; RIGHT EYE; LAST INJECTION; TOTAL OF EYLEA INJECTIONS: UNKNOWN
     Route: 031
     Dates: start: 20210310, end: 20210310
  3. EYLEA [Suspect]
     Active Substance: AFLIBERCEPT
     Dosage: 1 DF, ONCE; RIGHT EYE
     Route: 031
     Dates: start: 20201108, end: 20201108
  4. EYLEA [Suspect]
     Active Substance: AFLIBERCEPT
     Indication: AGE-RELATED MACULAR DEGENERATION
     Dosage: BOTH EYES
     Route: 031
     Dates: start: 20190224

REACTIONS (7)
  - Blindness unilateral [Not Recovered/Not Resolved]
  - Retinal oedema [Not Recovered/Not Resolved]
  - Cataract [Unknown]
  - Vision blurred [Not Recovered/Not Resolved]
  - Drug ineffective [Not Recovered/Not Resolved]
  - Retinal disorder [Not Recovered/Not Resolved]
  - Visual impairment [Not Recovered/Not Resolved]

NARRATIVE: CASE EVENT DATE: 20201108
